FAERS Safety Report 16013090 (Version 2)
Quarter: 2019Q2

REPORT INFORMATION
  Report Type: Spontaneous
  Country: US (occurrence: US)
  Receive Date: 20190227
  Receipt Date: 20190513
  Transmission Date: 20190711
  Serious: Yes (Death, Other)
  Sender: FDA-Public Use
  Company Number: US-BRISTOL-MYERS SQUIBB COMPANY-BMS-2019-018122

PATIENT
  Age: 52 Year
  Sex: Male
  Weight: 58.9 kg

DRUGS (1)
  1. OPDIVO [Suspect]
     Active Substance: NIVOLUMAB
     Indication: HEPATIC CANCER
     Dosage: 240 MG, Q2WK, 2 CYCLES
     Route: 042
     Dates: start: 20180416

REACTIONS (1)
  - Death [Fatal]

NARRATIVE: CASE EVENT DATE: 20180520
